FAERS Safety Report 18146950 (Version 1)
Quarter: 2020Q3

REPORT INFORMATION
  Report Type: Spontaneous
  Country: CA (occurrence: CA)
  Receive Date: 20200813
  Receipt Date: 20200813
  Transmission Date: 20201103
  Serious: Yes (Other)
  Sender: FDA-Public Use
  Company Number: CA-AMNEAL PHARMACEUTICALS-2020-AMRX-02352

PATIENT
  Age: 64 Year
  Sex: Female
  Weight: 65.7 kg

DRUGS (7)
  1. OCALIVA [Suspect]
     Active Substance: OBETICHOLIC ACID
     Indication: PRIMARY BILIARY CHOLANGITIS
     Dosage: 5 MILLIGRAM, QD
     Route: 048
     Dates: start: 20170913, end: 20171013
  2. OCALIVA [Suspect]
     Active Substance: OBETICHOLIC ACID
     Dosage: 5 MILLIGRAM, MORNING
     Route: 048
     Dates: start: 2017
  3. URSODIOL. [Suspect]
     Active Substance: URSODIOL
     Indication: PRODUCT USED FOR UNKNOWN INDICATION
     Dosage: UNK
     Route: 065
     Dates: start: 2011
  4. METFORMIN [Concomitant]
     Active Substance: METFORMIN HYDROCHLORIDE
     Indication: PRODUCT USED FOR UNKNOWN INDICATION
     Dosage: UNK
     Route: 065
     Dates: start: 2011
  5. METFORMIN [Concomitant]
     Active Substance: METFORMIN HYDROCHLORIDE
     Dosage: INCREASED DOSE
     Route: 065
  6. ALTACE [Concomitant]
     Active Substance: RAMIPRIL
     Indication: PRODUCT USED FOR UNKNOWN INDICATION
     Dosage: UNK
     Route: 065
     Dates: start: 2011
  7. HYDROCHLOROTHIAZIDE. [Concomitant]
     Active Substance: HYDROCHLOROTHIAZIDE
     Indication: PRODUCT USED FOR UNKNOWN INDICATION
     Dosage: UNK
     Route: 065
     Dates: start: 2011

REACTIONS (14)
  - Hepatic cirrhosis [Unknown]
  - Rash [Recovered/Resolved]
  - Blood glucose increased [Unknown]
  - Renal cyst [Unknown]
  - Diverticulum intestinal [Unknown]
  - Blood alkaline phosphatase increased [Not Recovered/Not Resolved]
  - Stress [Not Recovered/Not Resolved]
  - Hepatic fibrosis [Unknown]
  - Pruritus [Recovered/Resolved]
  - Fatigue [Not Recovered/Not Resolved]
  - Cholelithiasis [Unknown]
  - Glomerular filtration rate decreased [Recovered/Resolved]
  - Glycosylated haemoglobin increased [Unknown]
  - Scoliosis [Unknown]

NARRATIVE: CASE EVENT DATE: 201503
